FAERS Safety Report 5326210-7 (Version None)
Quarter: 2007Q2

REPORT INFORMATION
  Report Type: 
  Country: None (occurrence: None)
  Receive Date: 20070516
  Receipt Date: 20070507
  Transmission Date: 20071010
  Serious: Yes (Hospitalization)
  Sender: FDA-Public Use
  Company Number: PH-ASTRAZENECA-2007AP02653

PATIENT
  Age: 79 Year
  Sex: Female

DRUGS (4)
  1. NEXIUM [Suspect]
     Indication: ABDOMINAL PAIN UPPER
     Route: 042
     Dates: start: 20070417, end: 20070419
  2. NEOBLOC [Concomitant]
     Dosage: TREATMENT FOR MORE THAN 5 YEARS
  3. BUSCOPAN [Concomitant]
  4. NUBAIN [Concomitant]
     Indication: ABDOMINAL PAIN UPPER
     Route: 042

REACTIONS (1)
  - MUSCLE TWITCHING [None]
